FAERS Safety Report 6321443-5 (Version None)
Quarter: 2009Q3

REPORT INFORMATION
  Report Type: 
  Country: None (occurrence: None)
  Receive Date: 20090822
  Receipt Date: 20090407
  Transmission Date: 20100115
  Serious: No
  Sender: FDA-Public Use
  Company Number: US-ABBOTT-09P-163-0499431-00

PATIENT
  Sex: Female
  Weight: 67.192 kg

DRUGS (15)
  1. NIASPAN [Suspect]
     Indication: LOW DENSITY LIPOPROTEIN INCREASED
     Route: 048
     Dates: start: 20090114, end: 20090205
  2. NIASPAN [Suspect]
     Indication: BLOOD CHOLESTEROL INCREASED
     Dosage: FORM: 500 MILLIGRAMS
     Route: 048
     Dates: start: 20090206, end: 20090403
  3. NIASPAN [Suspect]
     Route: 048
     Dates: start: 20090404
  4. ATENOLOL [Concomitant]
     Indication: HYPERTENSION
     Route: 048
  5. MICARDIS HCT [Concomitant]
     Indication: HYPERTENSION
     Dosage: FORM: 40/12.5 MILLIGRAMS
     Route: 048
  6. ASPIRIN [Concomitant]
     Indication: CARDIOVASCULAR EVENT PROPHYLAXIS
     Route: 048
  7. CARDURA [Concomitant]
     Indication: HYPERTENSION
     Route: 048
  8. POTASSIUM CHLORIDE [Concomitant]
     Indication: ELECTROLYTE SUBSTITUTION THERAPY
     Route: 048
  9. FISH OIL [Concomitant]
     Indication: MEDICAL DIET
     Route: 048
  10. MULTI-VITAMIN [Concomitant]
     Indication: MEDICAL DIET
     Route: 048
  11. COQ10 [Concomitant]
     Indication: MEDICAL DIET
     Route: 048
  12. VITAMIN B COMPLEX CAP [Concomitant]
     Indication: MEDICAL DIET
     Route: 048
  13. VITAMIN E [Concomitant]
     Indication: MEDICAL DIET
     Route: 048
  14. IRON [Concomitant]
     Indication: MEDICAL DIET
     Route: 048
  15. CHROMIUM PICOLINATE [Concomitant]
     Indication: MEDICAL DIET
     Route: 048

REACTIONS (3)
  - FLUSHING [None]
  - INSOMNIA [None]
  - PARAESTHESIA [None]
